FAERS Safety Report 16767913 (Version 1)
Quarter: 2019Q3

REPORT INFORMATION
  Report Type: Spontaneous
  Country: IN (occurrence: US)
  Receive Date: 20190903
  Receipt Date: 20190903
  Transmission Date: 20191005
  Serious: Yes (Life-Threatening, Other)
  Sender: FDA-Public Use
  Company Number: US-BAYER-2019-160638

PATIENT
  Age: 53 Year
  Sex: Male

DRUGS (5)
  1. CLOPIDOGREL [Suspect]
     Active Substance: CLOPIDOGREL BISULFATE
     Dosage: UNK
  2. XARELTO [Suspect]
     Active Substance: RIVAROXABAN
     Dosage: UNK
     Route: 048
  3. METOPROLOL [METOPROLOL TARTRATE] [Suspect]
     Active Substance: METOPROLOL TARTRATE
     Dosage: UNK
  4. NIFEDIPINE. [Suspect]
     Active Substance: NIFEDIPINE
     Dosage: UNK
  5. ACETYLSALICYLIC ACID (CARDIO) [Suspect]
     Active Substance: ASPIRIN
     Dosage: UNK

REACTIONS (8)
  - Suicide attempt [Unknown]
  - Toxicity to various agents [Unknown]
  - Labelled drug-drug interaction medication error [Unknown]
  - Cardiac arrest [Unknown]
  - Infusion site haemorrhage [Unknown]
  - Bradycardia [Unknown]
  - Overdose [Unknown]
  - Product administration error [Unknown]
